FAERS Safety Report 5037535-7 (Version None)
Quarter: 2006Q2

REPORT INFORMATION
  Report Type: 
  Country: None (occurrence: None)
  Receive Date: 20060607
  Receipt Date: 20060222
  Transmission Date: 20061013
  Serious: No
  Sender: FDA-Public Use
  Company Number: 34049

PATIENT
  Age: 56 Year
  Sex: Male
  Weight: 68.0396 kg

DRUGS (2)
  1. NEVANAC [Suspect]
     Indication: PROPHYLAXIS
     Dosage: 1 GTT QID OPHT
     Route: 047
     Dates: start: 20060213, end: 20060221
  2. VIGAMOX [Concomitant]

REACTIONS (1)
  - IMPAIRED HEALING [None]
